FAERS Safety Report 5628479-8 (Version None)
Quarter: 2008Q1

REPORT INFORMATION
  Report Type: 
  Country: None (occurrence: None)
  Receive Date: 20080131
  Receipt Date: 20071026
  Transmission Date: 20080703
  Serious: No
  Sender: FDA-Public Use
  Company Number: 163-21880-07101657

PATIENT
  Sex: Female

DRUGS (4)
  1. REVLIMID [Suspect]
     Indication: MULTIPLE MYELOMA
     Dosage: 25 MG, QD, ORAL
     Route: 048
     Dates: start: 20070313
  2. STEROID (CORTICOSTEROIDS) (UNKNOWN) [Suspect]
     Indication: DRUG USE FOR UNKNOWN INDICATION
  3. LASIX [Concomitant]
  4. SLEEP AID (SCOPOLAMINE AMINOXIDE HYDROBROMIDE) [Concomitant]

REACTIONS (6)
  - FLUID RETENTION [None]
  - INSOMNIA [None]
  - NASOPHARYNGITIS [None]
  - NEUROPATHY PERIPHERAL [None]
  - RED BLOOD CELL COUNT DECREASED [None]
  - WHITE BLOOD CELL COUNT DECREASED [None]
